FAERS Safety Report 13915500 (Version 1)
Quarter: 2017Q3

REPORT INFORMATION
  Report Type: Spontaneous
  Country: MX (occurrence: MX)
  Receive Date: 20170829
  Receipt Date: 20170829
  Transmission Date: 20171127
  Serious: Yes (Hospitalization)
  Sender: FDA-Public Use
  Company Number: MX-GUERBET-MX-20170042

PATIENT
  Age: 59 Year
  Sex: Female
  Weight: 85 kg

DRUGS (2)
  1. OPTIRAY 320 [Suspect]
     Active Substance: IOVERSOL
     Indication: COMPUTERISED TOMOGRAM
     Route: 042
     Dates: start: 20170801, end: 20170801
  2. NACL [Concomitant]
     Active Substance: SODIUM CHLORIDE
     Indication: INVESTIGATION
     Route: 042

REACTIONS (4)
  - Dermatitis bullous [Recovering/Resolving]
  - Injection site pain [Recovering/Resolving]
  - Extravasation [Recovering/Resolving]
  - Oedema [Recovering/Resolving]

NARRATIVE: CASE EVENT DATE: 20170801
